FAERS Safety Report 5220591-0 (Version None)
Quarter: 2007Q1

REPORT INFORMATION
  Report Type: 
  Country: None (occurrence: None)
  Receive Date: 20070125
  Receipt Date: 20070125
  Transmission Date: 20070707
  Serious: Yes (Hospitalization)
  Sender: FDA-Public Use
  Company Number: None

PATIENT
  Sex: Female
  Weight: 122.4712 kg

DRUGS (3)
  1. ADRIAMYCIN PFS [Suspect]
     Indication: BREAST CANCER
     Dosage: PRIOR TO ADMISSION
  2. VICODIN [Concomitant]
  3. METHADONE HCL [Concomitant]

REACTIONS (1)
  - CARDIOMYOPATHY [None]
